FAERS Safety Report 8295749-7 (Version None)
Quarter: 2012Q2

REPORT INFORMATION
  Report Type: 
  Country: None (occurrence: None)
  Receive Date: 20120418
  Receipt Date: 20120413
  Transmission Date: 20120825
  Serious: No
  Sender: FDA-Public Use
  Company Number: US-PFIZER INC-2012092801

PATIENT
  Sex: Male
  Weight: 95.3 kg

DRUGS (1)
  1. LIPITOR [Suspect]
     Indication: BLOOD CHOLESTEROL INCREASED
     Dosage: 10 MG, DAILY
     Dates: start: 20120401, end: 20120403

REACTIONS (3)
  - DYSGEUSIA [None]
  - WEIGHT DECREASED [None]
  - PAROSMIA [None]
